FAERS Safety Report 10659349 (Version 1)
Quarter: 2014Q4

REPORT INFORMATION
  Report Type: Spontaneous
  Country: US (occurrence: None)
  Receive Date: 20141216
  Receipt Date: 20141216
  Transmission Date: 20150529
  Serious: Yes (Other)
  Sender: FDA-Public Use
  Company Number: None

PATIENT
  Age: 47 Year
  Sex: Female
  Weight: 120.2 kg

DRUGS (1)
  1. DICLOXACILLIN [Suspect]
     Active Substance: DICLOXACILLIN
     Indication: INFECTION
     Dosage: 1 PILL
     Dates: start: 20140612, end: 20140615

REACTIONS (7)
  - Pharyngeal oedema [None]
  - Skin burning sensation [None]
  - Dysphagia [None]
  - Oropharyngeal pain [None]
  - Dyspnoea [None]
  - Eye irritation [None]
  - Feeling abnormal [None]

NARRATIVE: CASE EVENT DATE: 20140615
